FAERS Safety Report 8735973 (Version 2)
Quarter: 2012Q4

REPORT INFORMATION
  Report Type: Report from Study
  Country: GB (occurrence: GB)
  Receive Date: 20120822
  Receipt Date: 20120831
  Transmission Date: 20130627
  Serious: Yes (Hospitalization)
  Sender: FDA-Public Use
  Company Number: GB-MILLENNIUM PHARMACEUTICALS, INC.-2012-05757

PATIENT

DRUGS (6)
  1. VELCADE [Suspect]
     Indication: DIFFUSE LARGE B-CELL LYMPHOMA
     Dosage: 2.11 mg, UNK
     Route: 065
     Dates: start: 20120612, end: 20120809
  2. RITUXIMAB [Suspect]
     Indication: DIFFUSE LARGE B-CELL LYMPHOMA
     Dosage: 611.75 mg, UNK
     Route: 065
     Dates: start: 20120524, end: 20120802
  3. CYCLOPHOSPHAMIDE [Suspect]
     Indication: DIFFUSE LARGE B-CELL LYMPHOMA
     Dosage: 1222.5 mg, UNK
     Route: 065
     Dates: start: 20120524, end: 20120802
  4. VINCRISTINE [Suspect]
     Indication: DIFFUSE LARGE B-CELL LYMPHOMA
     Dosage: 2 mg, UNK
     Route: 065
     Dates: start: 20120524, end: 20120802
  5. DOXORUBICIN [Suspect]
     Indication: DIFFUSE LARGE B-CELL LYMPHOMA
     Dosage: 81.5 mg, UNK
     Route: 065
     Dates: start: 20120524, end: 20120802
  6. PREDNISOLONE [Suspect]
     Indication: DIFFUSE LARGE B-CELL LYMPHOMA
     Dosage: 100 mg, UNK
     Route: 065
     Dates: start: 20120524, end: 20120802

REACTIONS (2)
  - Pyrexia [Unknown]
  - Cystitis noninfective [Recovered/Resolved]
